FAERS Safety Report 19068417 (Version 1)
Quarter: 2021Q1

REPORT INFORMATION
  Report Type: Spontaneous
  Country: US (occurrence: US)
  Receive Date: 20210327
  Receipt Date: 20210327
  Transmission Date: 20210420
  Serious: Yes (Other)
  Sender: FDA-Public Use
  Company Number: None

PATIENT
  Age: 30 Year
  Sex: Female
  Weight: 65.25 kg

DRUGS (1)
  1. MIRENA [Suspect]
     Active Substance: LEVONORGESTREL
     Indication: MENORRHAGIA
     Dosage: ?          QUANTITY:1 IUD;OTHER FREQUENCY:EVERY 5 YEARS;?
     Route: 067
     Dates: start: 20190912, end: 20210222

REACTIONS (2)
  - Borderline ovarian tumour [None]
  - Complication associated with device [None]

NARRATIVE: CASE EVENT DATE: 20210222
